FAERS Safety Report 5871434-3 (Version None)
Quarter: 2008Q3

REPORT INFORMATION
  Report Type: 
  Country: None (occurrence: None)
  Receive Date: 20080905
  Receipt Date: 20080905
  Transmission Date: 20090109
  Serious: Yes (Hospitalization)
  Sender: FDA-Public Use
  Company Number: PHEH1997US05232

PATIENT
  Sex: Female
  Weight: 43.3 kg

DRUGS (6)
  1. NEORAL [Suspect]
     Route: 048
     Dates: start: 19950319
  2. PREDNISONE [Concomitant]
  3. IMURAN [Concomitant]
  4. NORVASC [Concomitant]
  5. VASOTEC [Concomitant]
  6. LASIX [Concomitant]

REACTIONS (3)
  - ACIDOSIS [None]
  - HAEMOPTYSIS [None]
  - PNEUMONIA BACTERIAL [None]
